FAERS Safety Report 4594166-0 (Version None)
Quarter: 2005Q1

REPORT INFORMATION
  Report Type: 
  Country: None (occurrence: None)
  Receive Date: 20050301
  Receipt Date: 20040423
  Transmission Date: 20050727
  Serious: Yes (Death, Hospitalization)
  Sender: FDA-Public Use
  Company Number: JP-GLAXOSMITHKLINE-B0330995A

PATIENT
  Age: 76 Year
  Sex: Male
  Weight: 48 kg

DRUGS (7)
  1. ZEFIX [Suspect]
     Indication: HEPATITIS B
     Dosage: 100MG PER DAY
     Route: 048
     Dates: start: 20040330, end: 20040422
  2. URSO 250 [Concomitant]
     Indication: HEPATITIS B
     Dosage: 600MG PER DAY
     Route: 048
     Dates: start: 20040217, end: 20040424
  3. NEO-MINOPHAGEN C [Concomitant]
     Indication: HEPATITIS B
     Dosage: 5UNIT PER DAY
     Route: 042
     Dates: start: 20040324, end: 20040503
  4. GLYCYRON [Concomitant]
     Indication: HEPATITIS B
     Dosage: 6TAB PER DAY
     Route: 048
     Dates: start: 20040203, end: 20040416
  5. CARDIOVASCULAR DRUGS (UNSPECIFIED) [Concomitant]
     Route: 065
  6. ALDACTONE A [Concomitant]
     Indication: ASCITES
     Dosage: 25MG PER DAY
     Route: 048
     Dates: start: 20040401, end: 20040406
  7. AMINOLEBAN [Concomitant]
     Indication: HYPERAMMONAEMIA
     Dosage: 200ML PER DAY
     Route: 042
     Dates: start: 20040325, end: 20040426

REACTIONS (19)
  - ALANINE AMINOTRANSFERASE INCREASED [None]
  - AMMONIA INCREASED [None]
  - ASCITES [None]
  - ASPARTATE AMINOTRANSFERASE INCREASED [None]
  - BILIRUBIN CONJUGATED INCREASED [None]
  - BLOOD ALBUMIN DECREASED [None]
  - BLOOD CREATININE INCREASED [None]
  - BLOOD LACTATE DEHYDROGENASE INCREASED [None]
  - BLOOD UREA INCREASED [None]
  - GAMMA-GLUTAMYLTRANSFERASE INCREASED [None]
  - HEPATIC ATROPHY [None]
  - HEPATIC FAILURE [None]
  - HEPATIC FUNCTION ABNORMAL [None]
  - HEPATITIS B [None]
  - HYPERSENSITIVITY [None]
  - IMMUNOGLOBULINS INCREASED [None]
  - JAUNDICE [None]
  - MULTI-ORGAN FAILURE [None]
  - PLEURAL EFFUSION [None]
